FAERS Safety Report 8180450-0 (Version None)
Quarter: 2012Q1

REPORT INFORMATION
  Report Type: 
  Country: None (occurrence: None)
  Receive Date: 20120302
  Receipt Date: 20120221
  Transmission Date: 20120608
  Serious: Yes (Death, Hospitalization)
  Sender: FDA-Public Use
  Company Number: RU-ACTELION-A-CH2012-61375

PATIENT
  Age: 22 Year
  Sex: Female

DRUGS (2)
  1. TRACLEER [Suspect]
     Dosage: 32.5 MG, BID
     Route: 048
     Dates: start: 20120217, end: 20120221
  2. TRACLEER [Suspect]
     Indication: PULMONARY ARTERIAL HYPERTENSION
     Dosage: 62.5 MG, UNK
     Route: 048
     Dates: start: 20120201

REACTIONS (3)
  - RIGHT VENTRICULAR FAILURE [None]
  - BLOOD PRESSURE DECREASED [None]
  - CONDITION AGGRAVATED [None]
